FAERS Safety Report 6756258-7 (Version None)
Quarter: 2010Q2

REPORT INFORMATION
  Report Type: 
  Country: None (occurrence: None)
  Receive Date: 20100603
  Receipt Date: 20100603
  Transmission Date: 20101027
  Serious: Yes (Hospitalization)
  Sender: FDA-Public Use
  Company Number: None

PATIENT
  Sex: Female
  Weight: 53.1 kg

DRUGS (6)
  1. SULFAMETHOXAZOLE AND TRIMETHOPRIM [Suspect]
     Indication: WOUND INFECTION STAPHYLOCOCCAL
     Dosage: 1 DOUBLE STRENGTH TABLET TWICE DAILY PO
     Route: 048
     Dates: start: 20100516, end: 20100526
  2. CALCIUM CARBONATE [Concomitant]
  3. LAMOTRIGINE [Concomitant]
  4. KEPPRA [Concomitant]
  5. SYNTHROID [Concomitant]
  6. MULTIVITAMIN AND GLUCOSAMINE [Concomitant]

REACTIONS (1)
  - PLATELET COUNT DECREASED [None]
